FAERS Safety Report 20454830 (Version 1)
Quarter: 2022Q1

REPORT INFORMATION
  Report Type: Spontaneous
  Country: FR (occurrence: FR)
  Receive Date: 20220210
  Receipt Date: 20220210
  Transmission Date: 20220423
  Serious: Yes (Hospitalization)
  Sender: FDA-Public Use
  Company Number: None

PATIENT
  Age: 18 Year
  Sex: Female
  Weight: 62 kg

DRUGS (2)
  1. XANAX [Suspect]
     Active Substance: ALPRAZOLAM
     Dosage: 10 DF, ABOUT 50MG
     Route: 048
     Dates: start: 20220102, end: 20220102
  2. TERALITHE [Suspect]
     Active Substance: LITHIUM CARBONATE
     Indication: Toxicity to various agents
     Dosage: 20 DF, ABOUT 8 G
     Route: 048
     Dates: start: 20220102, end: 20220102

REACTIONS (6)
  - Overdose [Unknown]
  - Nausea [Recovering/Resolving]
  - Tremor [Unknown]
  - Somnolence [Recovering/Resolving]
  - Vomiting [Recovering/Resolving]
  - Toxicity to various agents [Unknown]

NARRATIVE: CASE EVENT DATE: 20220102
